FAERS Safety Report 5152953-4 (Version None)
Quarter: 2006Q4

REPORT INFORMATION
  Report Type: 
  Country: None (occurrence: None)
  Receive Date: 20061114
  Receipt Date: 20061114
  Transmission Date: 20070319
  Serious: Yes (Life-Threatening, Hospitalization)
  Sender: FDA-Public Use
  Company Number: None

PATIENT
  Age: 27 Year
  Sex: Male
  Weight: 63 kg

DRUGS (29)
  1. CEFEPIME [Suspect]
     Indication: CYSTIC FIBROSIS
     Dosage: 3.375MG EVERY 4 HOURS IV
     Route: 042
  2. ZOSYN [Suspect]
     Indication: CYSTIC FIBROSIS
     Dosage: 1G EVERY 12 HOURS IV
     Route: 042
  3. ACETAMINOPHEN [Concomitant]
  4. CYCLOSPORINE [Concomitant]
  5. CELLCEPT [Concomitant]
  6. SOSAMAX [Concomitant]
  7. AMBIEN [Concomitant]
  8. PREDNISONE TAB [Concomitant]
  9. ASPIRIN [Concomitant]
  10. MORPHINE [Concomitant]
  11. ZOSYN [Concomitant]
  12. BENADRYL [Concomitant]
  13. TYLENOL [Concomitant]
  14. CYCLOSPORINE [Concomitant]
  15. CELLCEPT [Concomitant]
  16. FOSAMAX [Concomitant]
  17. AMBIEN [Concomitant]
  18. PREDNISONE TAB [Concomitant]
  19. PREVACID [Concomitant]
  20. NORVASC [Concomitant]
  21. MIRALAX [Concomitant]
  22. CALCIUM CARBONATE [Concomitant]
  23. ASPIRIN [Concomitant]
  24. NIFEREX [Concomitant]
  25. VITAMIN CAP [Concomitant]
  26. MORPHINE [Concomitant]
  27. ULTRASE MT20 [Concomitant]
  28. TOBRAMYCIN [Concomitant]
  29. LACTULOSE [Concomitant]

REACTIONS (2)
  - OBSTRUCTIVE AIRWAYS DISORDER [None]
  - PARAESTHESIA ORAL [None]
